FAERS Safety Report 10539889 (Version 2)
Quarter: 2014Q4

REPORT INFORMATION
  Report Type: Spontaneous
  Country: ES (occurrence: ES)
  Receive Date: 20141024
  Receipt Date: 20141030
  Transmission Date: 20150529
  Serious: Yes (Life-Threatening, Hospitalization, Other)
  Sender: FDA-Public Use
  Company Number: ES-PFIZER INC-2014291797

PATIENT
  Age: 73 Year
  Sex: Female

DRUGS (3)
  1. CLORAZEPATE DIPOTASSIUM. [Interacting]
     Active Substance: CLORAZEPATE DIPOTASSIUM
     Dosage: 150 MG, TOTAL DOSE
     Route: 048
     Dates: start: 20131214, end: 20131214
  2. LYRICA [Suspect]
     Active Substance: PREGABALIN
     Dosage: 750 MG, TOTAL
     Route: 048
     Dates: start: 20131214, end: 20131214
  3. ADOLONTA - SLOW RELEASE [Interacting]
     Active Substance: TRAMADOL HYDROCHLORIDE
     Dosage: 1.5 G, TOTAL DOSE
     Route: 048
     Dates: start: 20131214, end: 20131214

REACTIONS (5)
  - Hepatitis acute [Recovered/Resolved]
  - Suicide attempt [Unknown]
  - Acute kidney injury [Recovered/Resolved]
  - Cardio-respiratory arrest [Recovered/Resolved]
  - Drug interaction [Recovered/Resolved]

NARRATIVE: CASE EVENT DATE: 20131214
